FAERS Safety Report 9542391 (Version 1)
Quarter: 2013Q3

REPORT INFORMATION
  Report Type: Spontaneous
  Country: US (occurrence: None)
  Receive Date: 20130919
  Receipt Date: 20130919
  Transmission Date: 20140515
  Serious: Yes (Other)
  Sender: FDA-Public Use
  Company Number: None

PATIENT
  Age: 29 Year
  Sex: Female
  Weight: 87.09 kg

DRUGS (2)
  1. NORA BE [Suspect]
     Indication: CONTRACEPTION
     Route: 048
  2. NORA BE [Suspect]
     Indication: POLYCYSTIC OVARIES
     Route: 048

REACTIONS (8)
  - Basedow^s disease [None]
  - Condition aggravated [None]
  - Metrorrhagia [None]
  - Energy increased [None]
  - Insomnia [None]
  - Stress [None]
  - Heart rate irregular [None]
  - Panic attack [None]
